FAERS Safety Report 15658512 (Version 2)
Quarter: 2018Q4

REPORT INFORMATION
  Report Type: Spontaneous
  Country: PT (occurrence: NO)
  Receive Date: 20181126
  Receipt Date: 20181228
  Transmission Date: 20190205
  Serious: Yes (Other)
  Sender: FDA-Public Use
  Company Number: PT-SUNOVION-2018SUN004555

PATIENT

DRUGS (1)
  1. ZEBINIX [Suspect]
     Active Substance: ESLICARBAZEPINE ACETATE
     Indication: PRODUCT USED FOR UNKNOWN INDICATION
     Dosage: UNK
     Route: 065
     Dates: start: 20180101, end: 20181029

REACTIONS (13)
  - Attention deficit/hyperactivity disorder [Recovered/Resolved]
  - Decreased interest [Unknown]
  - Nervousness [Unknown]
  - Metamorphopsia [Unknown]
  - Aphasia [Unknown]
  - Somnolence [Recovered/Resolved]
  - Liver disorder [Recovered/Resolved]
  - Memory impairment [Recovered/Resolved]
  - Confusional state [Unknown]
  - Depression [Unknown]
  - Ocular hyperaemia [Unknown]
  - Crying [Unknown]
  - Chest pain [Recovered/Resolved]

NARRATIVE: CASE EVENT DATE: 20180901
